FAERS Safety Report 10407255 (Version 1)
Quarter: 2014Q3

REPORT INFORMATION
  Report Type: Spontaneous
  Country: US (occurrence: US)
  Receive Date: 20140825
  Receipt Date: 20140825
  Transmission Date: 20150326
  Serious: No
  Sender: FDA-Public Use
  Company Number: US-ASTRAZENECA-2014SE60104

PATIENT
  Age: 72 Year
  Sex: Female
  Weight: 68 kg

DRUGS (10)
  1. VITAMIN D [Concomitant]
     Active Substance: CHOLECALCIFEROL
     Indication: OSTEOPOROSIS
     Dosage: 2000 DAILY
     Route: 048
  2. MEDICATION FOR CHOLESTEROL [Concomitant]
     Indication: BLOOD CHOLESTEROL ABNORMAL
  3. OTEZLA [Concomitant]
     Active Substance: APREMILAST
     Indication: PSORIATIC ARTHROPATHY
     Dosage: NR DAILY
     Route: 048
  4. PRILOSEC [Suspect]
     Active Substance: OMEPRAZOLE MAGNESIUM
     Indication: GASTRITIS
     Route: 048
     Dates: start: 201408
  5. EVISTA [Concomitant]
     Active Substance: RALOXIFENE HYDROCHLORIDE
     Indication: OSTEOPOROSIS
  6. MEDICATION FOR BLOOD PRESSURE [Concomitant]
     Indication: BLOOD PRESSURE ABNORMAL
  7. MVI [Concomitant]
     Active Substance: VITAMINS
     Route: 048
  8. PRILOSEC [Suspect]
     Active Substance: OMEPRAZOLE MAGNESIUM
     Indication: GASTRITIS
     Route: 048
  9. PRILOSEC [Suspect]
     Active Substance: OMEPRAZOLE MAGNESIUM
     Indication: GASTRITIS
     Route: 048
     Dates: start: 2012, end: 201408
  10. MEDICATION FOR THYROID [Concomitant]
     Indication: THYROID DISORDER

REACTIONS (2)
  - Diarrhoea [Unknown]
  - Osteoporosis [Unknown]

NARRATIVE: CASE EVENT DATE: 20140809
